FAERS Safety Report 17323590 (Version 1)
Quarter: 2020Q1

REPORT INFORMATION
  Report Type: Spontaneous
  Country: US (occurrence: US)
  Receive Date: 20200127
  Receipt Date: 20200127
  Transmission Date: 20200409
  Serious: Yes (Death, Hospitalization, Other)
  Sender: FDA-Public Use
  Company Number: US-AUROBINDO-AUR-APL-2020-003614

PATIENT
  Age: 30 Year
  Sex: Female

DRUGS (4)
  1. RITONAVIR. [Suspect]
     Active Substance: RITONAVIR
     Indication: HIV INFECTION
     Dosage: UNK
     Route: 065
  2. DARUNAVIR [Suspect]
     Active Substance: DARUNAVIR
     Indication: HIV INFECTION
     Dosage: UNK
     Route: 065
  3. EMTRICITABINE AND TENOFOVIR [Suspect]
     Active Substance: EMTRICITABINE\TENOFOVIR
     Indication: HIV INFECTION
     Dosage: ONCE A DAY
     Route: 065
  4. RALTEGRAVIR. [Suspect]
     Active Substance: RALTEGRAVIR
     Indication: HIV INFECTION
     Dosage: UNK
     Route: 016

REACTIONS (10)
  - Dyspnoea [Unknown]
  - Cardiac arrest [Unknown]
  - Respiratory alkalosis [Unknown]
  - Tachycardia [Unknown]
  - Pulmonary arterial hypertension [Unknown]
  - Lactic acidosis [Fatal]
  - Acute kidney injury [Unknown]
  - Transaminases increased [Unknown]
  - Fatigue [Unknown]
  - Metabolic acidosis [Unknown]
